FAERS Safety Report 20639463 (Version 2)
Quarter: 2022Q2

REPORT INFORMATION
  Report Type: Spontaneous
  Country: FR (occurrence: FR)
  Receive Date: 20220326
  Receipt Date: 20220406
  Transmission Date: 20220721
  Serious: Yes (Hospitalization)
  Sender: FDA-Public Use
  Company Number: None

PATIENT
  Age: 72 Year
  Sex: Male
  Weight: 81 kg

DRUGS (10)
  1. RISPERDAL [Suspect]
     Active Substance: RISPERIDONE
     Indication: Agitation
     Route: 048
     Dates: start: 20220310, end: 20220314
  2. VENLAFAXINE [Suspect]
     Active Substance: VENLAFAXINE HYDROCHLORIDE
     Indication: Depression
     Route: 048
     Dates: end: 20220315
  3. OXAZEPAM [Suspect]
     Active Substance: OXAZEPAM
     Indication: Agitation
     Route: 048
     Dates: start: 20220310, end: 20220314
  4. RIVAROXABAN [Concomitant]
     Active Substance: RIVAROXABAN
  5. LERCANIDIPINE HYDROCHLORIDE [Concomitant]
     Active Substance: LERCANIDIPINE HYDROCHLORIDE
  6. THIAMINE [Concomitant]
     Active Substance: THIAMINE
  7. LEVOTHYROXINE SODIUM [Concomitant]
     Active Substance: LEVOTHYROXINE SODIUM
  8. BISOPROLOL FUMARATE [Concomitant]
     Active Substance: BISOPROLOL FUMARATE
  9. PYRIDOXINE [Concomitant]
     Active Substance: PYRIDOXINE
  10. POTASSIUM CHLORIDE [Concomitant]
     Active Substance: POTASSIUM CHLORIDE

REACTIONS (2)
  - Coma [Recovered/Resolved]
  - Atonic seizures [Recovered/Resolved]

NARRATIVE: CASE EVENT DATE: 20220311
